FAERS Safety Report 4575805-7 (Version None)
Quarter: 2005Q1

REPORT INFORMATION
  Report Type: 
  Country: None (occurrence: None)
  Receive Date: 20050209
  Receipt Date: 20040914
  Transmission Date: 20050727
  Serious: Yes (Death)
  Sender: FDA-Public Use
  Company Number: RU-GLAXOSMITHKLINE-B0345227A

PATIENT
  Age: 67 Year
  Sex: Male
  Weight: 88 kg

DRUGS (4)
  1. BLINDED TRIAL MEDICATION [Suspect]
     Indication: CHRONIC OBSTRUCTIVE PULMONARY DISEASE
     Route: 055
     Dates: start: 20031114, end: 20040724
  2. VENTOLIN [Suspect]
     Dosage: 200MCG AS REQUIRED
     Route: 055
  3. SALMETEROL [Concomitant]
     Indication: CHRONIC OBSTRUCTIVE PULMONARY DISEASE
     Dosage: 50MCG TWICE PER DAY
     Route: 055
     Dates: start: 20031030, end: 20031113
  4. PREDNISOLONE [Concomitant]
     Dosage: 30MG PER DAY
     Route: 048
     Dates: start: 20031030, end: 20031113

REACTIONS (2)
  - CARDIOPULMONARY FAILURE [None]
  - DYSPNOEA EXACERBATED [None]
